FAERS Safety Report 14681887 (Version 1)
Quarter: 2018Q1

REPORT INFORMATION
  Report Type: Report from Study
  Country: US (occurrence: US)
  Receive Date: 20180326
  Receipt Date: 20180326
  Transmission Date: 20180509
  Serious: Yes (Other)
  Sender: FDA-Public Use
  Company Number: US-SHIRE-US201810481

PATIENT
  Sex: Male

DRUGS (1)
  1. GATTEX [Suspect]
     Active Substance: TEDUGLUTIDE\WATER
     Indication: SHORT-BOWEL SYNDROME
     Dosage: 0.351 ML, 1X/DAY:QD
     Route: 058
     Dates: start: 20171121

REACTIONS (3)
  - Nephrolithiasis [Unknown]
  - Injection site erythema [Unknown]
  - Injection site swelling [Unknown]
